FAERS Safety Report 8052301-6 (Version None)
Quarter: 2012Q1

REPORT INFORMATION
  Report Type: 
  Country: None (occurrence: None)
  Receive Date: 20120118
  Receipt Date: 20120109
  Transmission Date: 20120608
  Serious: Yes (Other)
  Sender: FDA-Public Use
  Company Number: US-BAYER-2011-038328

PATIENT
  Age: 41 Year
  Sex: Female
  Weight: 57.143 kg

DRUGS (2)
  1. YASMIN [Suspect]
     Dosage: UNK
     Route: 048
     Dates: start: 20030101
  2. YAZ [Suspect]
     Dosage: UNK
     Route: 048
     Dates: start: 20030101

REACTIONS (10)
  - ANXIETY [None]
  - INJURY [None]
  - PAIN [None]
  - CHOLECYSTITIS CHRONIC [None]
  - FEAR [None]
  - ANHEDONIA [None]
  - GALLBLADDER DISORDER [None]
  - CHOLELITHIASIS [None]
  - HEPATIC NEOPLASM [None]
  - QUALITY OF LIFE DECREASED [None]
